FAERS Safety Report 10718439 (Version 1)
Quarter: 2015Q1

REPORT INFORMATION
  Report Type: Spontaneous
  Country: CN (occurrence: CN)
  Receive Date: 20150119
  Receipt Date: 20150119
  Transmission Date: 20150721
  Serious: Yes (Other)
  Sender: FDA-Public Use
  Company Number: CN-PFIZER INC-2015017661

PATIENT
  Age: 14 Year
  Sex: Male

DRUGS (4)
  1. CYTOSAR [Concomitant]
     Active Substance: CYTARABINE
     Dosage: 3.5 G, 2X/DAY
     Route: 041
     Dates: start: 20130403
  2. METHOTREXATE [Suspect]
     Active Substance: METHOTREXATE
     Indication: ACUTE LYMPHOCYTIC LEUKAEMIA
     Dosage: 300 MG, 1X/DAY
     Route: 041
     Dates: start: 20130402, end: 20130404
  3. CALCIUM FOLINATE [Concomitant]
     Active Substance: LEUCOVORIN CALCIUM
     Dosage: 15 MG, 3X/DAY
     Route: 041
     Dates: start: 20130403
  4. SOLU-MEDROL [Suspect]
     Active Substance: METHYLPREDNISOLONE SODIUM SUCCINATE
     Dosage: 40 MG, 1X/DAY
     Route: 041
     Dates: start: 20130403, end: 20130405

REACTIONS (3)
  - Decreased appetite [Recovering/Resolving]
  - Pyrexia [Recovering/Resolving]
  - Agranulocytosis [Recovering/Resolving]

NARRATIVE: CASE EVENT DATE: 20130409
